FAERS Safety Report 10234982 (Version 1)
Quarter: 2014Q2

REPORT INFORMATION
  Report Type: Spontaneous
  Country: US (occurrence: US)
  Receive Date: 20140613
  Receipt Date: 20140613
  Transmission Date: 20141212
  Serious: Yes (Other)
  Sender: FDA-Public Use
  Company Number: US-MACLEODS PHARMACEUTICALS US LTD-MAC2014001149

PATIENT
  Sex: 0

DRUGS (2)
  1. LEVOFLOXACIN [Suspect]
     Indication: ENDOPHTHALMITIS
     Dosage: UNK, 2 WEEKS
     Route: 042
  2. LEVOFLOXACIN [Suspect]
     Dosage: UNK, 2 MONTHS
     Route: 048

REACTIONS (6)
  - Vanishing bile duct syndrome [Unknown]
  - Drug-induced liver injury [Unknown]
  - Cholestasis [Unknown]
  - Ocular icterus [Unknown]
  - Jaundice [Unknown]
  - Liver function test abnormal [Unknown]
